FAERS Safety Report 5237379-7 (Version None)
Quarter: 2007Q1

REPORT INFORMATION
  Report Type: 
  Country: None (occurrence: None)
  Receive Date: 20070213
  Receipt Date: 20070201
  Transmission Date: 20070707
  Serious: Yes (Other)
  Sender: FDA-Public Use
  Company Number: US-SHR-US-2006-035605

PATIENT
  Age: 55 Year
  Sex: Female
  Weight: 95.238 kg

DRUGS (4)
  1. BETASERON [Suspect]
     Dosage: 8 MIU, EVERY 2D
     Route: 058
     Dates: start: 20060920, end: 20061124
  2. ASPIRIN [Concomitant]
     Indication: PAIN
  3. IMIPRAMINE [Concomitant]
     Dosage: 5 MG, BED T.
  4. OXYBUTYNIN [Concomitant]
     Dosage: 5 MG, 1-2X

REACTIONS (7)
  - HEPATOMEGALY [None]
  - INJECTION SITE BRUISING [None]
  - INJECTION SITE ERYTHEMA [None]
  - INJECTION SITE MASS [None]
  - INJECTION SITE PAIN [None]
  - LIVER FUNCTION TEST ABNORMAL [None]
  - PULMONARY CONGESTION [None]
